FAERS Safety Report 16458391 (Version 1)
Quarter: 2019Q2

REPORT INFORMATION
  Report Type: Report from Study
  Country: NL (occurrence: NL)
  Receive Date: 20190620
  Receipt Date: 20190620
  Transmission Date: 20190711
  Serious: Yes (Other)
  Sender: FDA-Public Use
  Company Number: NL-AMGEN-NLDSL2019077714

PATIENT
  Age: 70 Year
  Sex: Male

DRUGS (11)
  1. AMLODIPINE [Concomitant]
     Active Substance: AMLODIPINE BESYLATE
     Dosage: 5 MILLIGRAM, QD
  2. OMEPRAZOLE. [Concomitant]
     Active Substance: OMEPRAZOLE
     Dosage: 20 MILLIGRAM, QD
  3. TRIAMCINOLONACETONIDE [Concomitant]
     Active Substance: TRIAMCINOLONE ACETONIDE
     Dosage: 1 MILLIGRAM PER GRAM
  4. XGEVA [Suspect]
     Active Substance: DENOSUMAB
     Indication: PROPHYLAXIS
     Dosage: 120 MILLIGRAM (70MG/ML FLACON), Q4WK
     Route: 065
     Dates: start: 20190415
  5. FERROFUMARAAT [Concomitant]
     Dosage: 200 MILLIGRAM, QD
  6. LORATADINE. [Concomitant]
     Active Substance: LORATADINE
     Dosage: 10 MILLIGRAM, QD
  7. PREDNISOLON [Concomitant]
     Active Substance: PREDNISOLONE
     Dosage: 5 MILLIGRAM/2XD 1T
  8. ENALAPRIL [Concomitant]
     Active Substance: ENALAPRIL
     Dosage: 20 MILLIGRAM, QD
  9. GOSERELINE [Concomitant]
     Active Substance: GOSERELIN
     Dosage: 10.8 MILLIGRAM, QD
  10. ABIRATERON [Concomitant]
     Active Substance: ABIRATERONE
     Dosage: 500 MILLIGRAM/1XD 2T,
  11. CALCIUM CARBONATE W/COLECALCIFEROL [Concomitant]
     Active Substance: CALCIUM CARBONATE\CHOLECALCIFEROL
     Dosage: 500 MILLIGRAM, QD

REACTIONS (1)
  - Subcutaneous abscess [Not Recovered/Not Resolved]

NARRATIVE: CASE EVENT DATE: 201905
